FAERS Safety Report 4998579-4 (Version None)
Quarter: 2006Q2

REPORT INFORMATION
  Report Type: 
  Country: None (occurrence: None)
  Receive Date: 20060508
  Receipt Date: 20060424
  Transmission Date: 20061013
  Serious: Yes (Other)
  Sender: FDA-Public Use
  Company Number: CHWYE459310MAR06

PATIENT
  Age: 51 Year
  Sex: Female

DRUGS (6)
  1. EFFEXOR [Suspect]
     Indication: ADJUSTMENT DISORDER
     Dosage: 150 MG 1X PER 1 DAY ORAL
     Route: 048
     Dates: start: 20020101, end: 20051219
  2. EFFEXOR [Suspect]
     Indication: DEPRESSION
     Dosage: 150 MG 1X PER 1 DAY ORAL
     Route: 048
     Dates: start: 20020101, end: 20051219
  3. SURMONTIL (TRIMIPRAMINE, , 0) [Suspect]
     Indication: DEPRESSION
     Dosage: 200 MG 1X PER 1 DAY ORAL
     Route: 048
     Dates: start: 20020101, end: 20051219
  4. PANTOPRAZOLE SODIUM [Concomitant]
  5. ATORVASTATIN CALCIUM [Concomitant]
  6. PROMAZINE HCL [Concomitant]

REACTIONS (7)
  - ANTIDEPRESSANT DRUG LEVEL INCREASED [None]
  - BLOOD TRIGLYCERIDES INCREASED [None]
  - CHEST DISCOMFORT [None]
  - CHEST PAIN [None]
  - INSOMNIA [None]
  - LOW DENSITY LIPOPROTEIN INCREASED [None]
  - PAIN [None]
